FAERS Safety Report 5633275-1 (Version None)
Quarter: 2008Q1

REPORT INFORMATION
  Report Type: 
  Country: None (occurrence: None)
  Receive Date: 20080221
  Receipt Date: 20080213
  Transmission Date: 20080703
  Serious: Yes (Other)
  Sender: FDA-Public Use
  Company Number: BR-SANOFI-SYNTHELABO-A01200801770

PATIENT
  Sex: Female
  Weight: 49 kg

DRUGS (6)
  1. RIVOTRIL [Concomitant]
     Indication: INSOMNIA
     Route: 048
     Dates: start: 20070101
  2. FLUOXETINE [Concomitant]
     Indication: DEPRESSION
     Route: 048
     Dates: start: 20080126
  3. ASPIRIN [Concomitant]
     Indication: ANTICOAGULANT THERAPY
     Route: 048
     Dates: start: 19980101
  4. CALTREN [Concomitant]
     Indication: HYPERTENSION
     Route: 048
     Dates: start: 20060101
  5. ARADOIS H [Concomitant]
     Indication: HYPERTENSION
     Route: 048
     Dates: start: 19980101
  6. STILNOX [Suspect]
     Indication: INSOMNIA
     Route: 048
     Dates: start: 20080126, end: 20080213

REACTIONS (2)
  - DELIRIUM [None]
  - INSOMNIA [None]
